FAERS Safety Report 5239632-X (Version None)
Quarter: 2007Q1

REPORT INFORMATION
  Report Type: 
  Country: None (occurrence: None)
  Receive Date: 20070216
  Receipt Date: 20070208
  Transmission Date: 20070707
  Serious: Yes (Other)
  Sender: FDA-Public Use
  Company Number: GB-GLAXOSMITHKLINE-B0457508A

PATIENT
  Sex: Female

DRUGS (3)
  1. IMIGRAN RECOVERY [Suspect]
     Indication: MIGRAINE
     Route: 065
  2. CITALOPRAM HYDROBROMIDE [Suspect]
     Route: 065
  3. UNKNOWN [Concomitant]
     Route: 065

REACTIONS (2)
  - ANAPHYLACTIC SHOCK [None]
  - DRUG INTERACTION [None]
